FAERS Safety Report 4852192-8 (Version None)
Quarter: 2005Q4

REPORT INFORMATION
  Report Type: 
  Country: None (occurrence: None)
  Receive Date: 20051213
  Receipt Date: 20051209
  Transmission Date: 20060501
  Serious: Yes (Hospitalization)
  Sender: FDA-Public Use
  Company Number: US-GLAXOSMITHKLINE-A0585258A

PATIENT
  Age: 72 Year

DRUGS (6)
  1. COREG [Suspect]
     Dosage: 9.375MG TWICE PER DAY
     Route: 048
     Dates: start: 20030701
  2. LISINOPRIL [Concomitant]
  3. AMIODARONE HCL [Concomitant]
  4. LEXAPRO [Concomitant]
  5. SYNTHROID [Concomitant]
  6. LORAZEPAM [Concomitant]

REACTIONS (1)
  - PERIPHERAL COLDNESS [None]
